FAERS Safety Report 17017155 (Version 2)
Quarter: 2020Q1

REPORT INFORMATION
  Report Type: Spontaneous
  Country: US (occurrence: US)
  Receive Date: 20191111
  Receipt Date: 20200107
  Transmission Date: 20200409
  Serious: Yes (Other)
  Sender: FDA-Public Use
  Company Number: US-ENDO PHARMACEUTICALS INC-2019-109515

PATIENT
  Age: 47 Year
  Sex: Male
  Weight: 102.49 kg

DRUGS (1)
  1. XIAFLEX [Suspect]
     Active Substance: COLLAGENASE CLOSTRIDIUM HISTOLYTICUM
     Indication: PEYRONIE^S DISEASE
     Dosage: UNK UNKNOWN, CYCLE 1, INJECTIONS 1 AND 2
     Route: 065
     Dates: start: 2019

REACTIONS (2)
  - Neuralgia [Recovered/Resolved]
  - Periarthritis [Recovered/Resolved]

NARRATIVE: CASE EVENT DATE: 20191031
